FAERS Safety Report 12979164 (Version 1)
Quarter: 2016Q4

REPORT INFORMATION
  Report Type: Spontaneous
  Country: FR (occurrence: FR)
  Receive Date: 20161128
  Receipt Date: 20161128
  Transmission Date: 20170207
  Serious: Yes (Hospitalization, Congenital Anomaly, Other)
  Sender: FDA-Public Use
  Company Number: FR-GLAXOSMITHKLINE-FR2016GSK173329

PATIENT
  Sex: Female

DRUGS (5)
  1. SPECIAFOLDINE [Concomitant]
     Active Substance: FOLIC ACID
     Dosage: UNK
     Route: 064
     Dates: end: 201211
  2. DEPAKINE [Suspect]
     Active Substance: VALPROATE SODIUM
     Indication: PRODUCT USED FOR UNKNOWN INDICATION
     Dosage: UNK
     Route: 064
  3. LAMICTAL [Suspect]
     Active Substance: LAMOTRIGINE
     Indication: PRODUCT USED FOR UNKNOWN INDICATION
     Dosage: UNK
     Route: 064
     Dates: end: 2012
  4. URBANYL [Concomitant]
     Active Substance: CLOBAZAM
     Dosage: UNK
     Route: 064
  5. VIMPAT [Concomitant]
     Active Substance: LACOSAMIDE
     Dosage: UNK
     Route: 064
     Dates: start: 2012

REACTIONS (7)
  - Pulmonary arterial hypertension [Recovered/Resolved]
  - Speech disorder developmental [Unknown]
  - Renal aplasia [Not Recovered/Not Resolved]
  - Foetal exposure during pregnancy [Unknown]
  - Atrial septal defect [Recovered/Resolved]
  - Dacryostenosis congenital [Recovering/Resolving]
  - Hypotonia neonatal [Recovered/Resolved]

NARRATIVE: CASE EVENT DATE: 2013
